FAERS Safety Report 5635893-3 (Version None)
Quarter: 2008Q1

REPORT INFORMATION
  Report Type: 
  Country: None (occurrence: None)
  Receive Date: 20080221
  Receipt Date: 20080218
  Transmission Date: 20080703
  Serious: Yes (Other)
  Sender: FDA-Public Use
  Company Number: THQ2008A00385

PATIENT
  Sex: Male

DRUGS (2)
  1. PIOGLITAZONE HCL [Suspect]
     Indication: DIABETES MELLITUS
     Dosage: PER ORAL
     Route: 048
     Dates: start: 20010101, end: 20070901
  2. AMARYL [Concomitant]

REACTIONS (9)
  - CARDIAC FAILURE [None]
  - CHOLECYSTITIS [None]
  - FLUID RETENTION [None]
  - HEPATIC FAILURE [None]
  - HYPERVOLAEMIA [None]
  - JAUNDICE [None]
  - PULMONARY EMBOLISM [None]
  - RESPIRATORY FAILURE [None]
  - TYPE 1 DIABETES MELLITUS [None]
